FAERS Safety Report 5696066-1 (Version None)
Quarter: 2008Q2

REPORT INFORMATION
  Report Type: 
  Country: None (occurrence: None)
  Receive Date: 20080407
  Receipt Date: 20080402
  Transmission Date: 20081010
  Serious: Yes (Other)
  Sender: FDA-Public Use
  Company Number: B0509064A

PATIENT
  Age: 54 Year
  Sex: Female
  Weight: 47 kg

DRUGS (7)
  1. VALTREX [Suspect]
     Indication: HERPES VIRUS INFECTION
     Dosage: 500MG THREE TIMES PER DAY
     Route: 048
     Dates: start: 20080128, end: 20080131
  2. SULPERAZON [Suspect]
     Indication: CHOLECYSTITIS
     Route: 042
     Dates: start: 20080131, end: 20080131
  3. TIENAM [Suspect]
     Indication: CHOLECYSTITIS
     Route: 042
     Dates: start: 20080201, end: 20080201
  4. CONIEL [Suspect]
     Indication: HYPERTENSION
     Dosage: 4MG PER DAY
     Route: 048
     Dates: start: 20071201
  5. CIPROFLOXACIN [Concomitant]
     Indication: CHOLECYSTITIS
     Dosage: 600MG PER DAY
     Route: 042
     Dates: start: 20080202, end: 20080208
  6. OMEPRAL [Concomitant]
     Indication: DUODENAL ULCER
     Dosage: 40MG PER DAY
     Route: 042
     Dates: start: 20080205, end: 20080209
  7. MEFENAMIC ACID [Concomitant]
     Indication: GASTRITIS
     Dosage: 750MG PER DAY
     Route: 048
     Dates: start: 20080128, end: 20080131

REACTIONS (8)
  - ABDOMINAL PAIN UPPER [None]
  - ASCITES [None]
  - CHOLECYSTITIS ACUTE [None]
  - GENERALISED OEDEMA [None]
  - HEPATITIS [None]
  - PYREXIA [None]
  - RASH [None]
  - TOXIC SKIN ERUPTION [None]
